FAERS Safety Report 6864243-X (Version None)
Quarter: 2010Q3

REPORT INFORMATION
  Report Type: 
  Country: None (occurrence: None)
  Receive Date: 20100721
  Receipt Date: 20100719
  Transmission Date: 20110219
  Serious: Yes (Disabling)
  Sender: FDA-Public Use
  Company Number: GB-MERCK-1007GBR00092

PATIENT
  Age: 55 Year
  Sex: Male
  Weight: 101 kg

DRUGS (6)
  1. JANUVIA [Suspect]
     Indication: DIABETES MELLITUS
     Route: 048
     Dates: start: 20100101, end: 20100301
  2. BENDROFLUMETHIAZIDE [Concomitant]
     Route: 065
  3. GLICLAZIDE [Concomitant]
     Route: 065
  4. METFORMIN [Concomitant]
     Route: 065
  5. PERINDOPRIL [Concomitant]
     Route: 048
  6. SIMVASTATIN [Concomitant]
     Route: 065

REACTIONS (5)
  - BLOOD BILIRUBIN INCREASED [None]
  - JAUNDICE CHOLESTATIC [None]
  - MALAISE [None]
  - NAUSEA [None]
  - WEIGHT DECREASED [None]
